FAERS Safety Report 19122128 (Version 2)
Quarter: 2021Q2

REPORT INFORMATION
  Report Type: Spontaneous
  Country: DE (occurrence: DE)
  Receive Date: 20210412
  Receipt Date: 20210602
  Transmission Date: 20210717
  Serious: Yes (Hospitalization, Other)
  Sender: FDA-Public Use
  Company Number: DE-SA-2021SA119542

PATIENT
  Age: 16 Year
  Sex: Male

DRUGS (3)
  1. IDELVION [Concomitant]
     Active Substance: COAGULATION FACTOR IX RECOMBINANT HUMAN
  2. ALPROLIX [Suspect]
     Active Substance: EFTRENONACOG ALFA
  3. ALPROLIX [Suspect]
     Active Substance: EFTRENONACOG ALFA

REACTIONS (1)
  - Traumatic intracranial haemorrhage [Unknown]
